FAERS Safety Report 5361917-7 (Version None)
Quarter: 2007Q2

REPORT INFORMATION
  Report Type: 
  Country: None (occurrence: None)
  Receive Date: 20070614
  Receipt Date: 20070531
  Transmission Date: 20071010
  Serious: Yes (Other)
  Sender: FDA-Public Use
  Company Number: AU-1163150

PATIENT
  Sex: Male

DRUGS (2)
  1. BSS [Suspect]
     Dosage: IRRIGATION SOLUTION 500 ML NI INTRAOCULAR
     Route: 031
     Dates: start: 20070412, end: 20070412
  2. BSS [Suspect]
     Dosage: IRRIGATION SOLUTION 15 ML NI INTRAOCULAR
     Route: 031
     Dates: start: 20070412, end: 20070412

REACTIONS (3)
  - ENDOPHTHALMITIS [None]
  - EYE INFECTION INTRAOCULAR [None]
  - NOCARDIOSIS [None]
